FAERS Safety Report 8621767-2 (Version None)
Quarter: 2012Q3

REPORT INFORMATION
  Report Type: 
  Country: None (occurrence: None)
  Receive Date: 20120821
  Receipt Date: 20120821
  Transmission Date: 20120928
  Serious: Yes (Other)
  Sender: FDA-Public Use
  Company Number: None

PATIENT
  Sex: Female

DRUGS (1)
  1. SPRYCEL [Suspect]
     Dosage: 100MG DAILY PO
     Route: 048
     Dates: start: 20120626, end: 20120802

REACTIONS (4)
  - NAUSEA [None]
  - BONE PAIN [None]
  - INFLUENZA LIKE ILLNESS [None]
  - HEADACHE [None]
